FAERS Safety Report 8969128 (Version 2)
Quarter: 2013Q1

REPORT INFORMATION
  Report Type: Report from Study
  Country: CN (occurrence: CN)
  Receive Date: 20121217
  Receipt Date: 20130329
  Transmission Date: 20140127
  Serious: Yes (Other)
  Sender: FDA-Public Use
  Company Number: CN-ROCHE-1168527

PATIENT
  Age: 57 Year
  Sex: Female
  Weight: 48 kg

DRUGS (5)
  1. PEGASYS [Suspect]
     Indication: HEPATITIS C
     Route: 058
     Dates: start: 20121124, end: 20121124
  2. PEGASYS [Suspect]
     Route: 058
     Dates: start: 20130108
  3. RIBAVIRIN [Suspect]
     Indication: HEPATITIS C
     Dosage: 9 TABLETS PER DAY
     Route: 048
     Dates: start: 20121125
  4. RIBAVIRIN [Suspect]
     Dosage: 7 TABLETS PER DAY
     Route: 065
     Dates: start: 201303
  5. SINOGEN [Concomitant]
     Route: 065
     Dates: end: 20130104

REACTIONS (1)
  - Blood bilirubin increased [Recovered/Resolved]
